FAERS Safety Report 19110008 (Version 2)
Quarter: 2021Q2

REPORT INFORMATION
  Report Type: Spontaneous
  Country: US (occurrence: US)
  Receive Date: 20210409
  Receipt Date: 20210616
  Transmission Date: 20210717
  Serious: No
  Sender: FDA-Public Use
  Company Number: US-JNJFOC-20210404331

PATIENT
  Age: 43 Year
  Sex: Female
  Weight: 169 kg

DRUGS (1)
  1. REMICADE [Suspect]
     Active Substance: INFLIXIMAB
     Indication: CROHN^S DISEASE
     Route: 042
     Dates: start: 2017

REACTIONS (1)
  - Thrombophlebitis [Recovering/Resolving]

NARRATIVE: CASE EVENT DATE: 20200420
